FAERS Safety Report 4737264-0 (Version None)
Quarter: 2005Q3

REPORT INFORMATION
  Report Type: 
  Country: None (occurrence: None)
  Receive Date: 20050808
  Receipt Date: 20050720
  Transmission Date: 20060218
  Serious: Yes (Life-Threatening, Hospitalization, Other)
  Sender: FDA-Public Use
  Company Number: PHRM2005FR02131

PATIENT
  Age: 14 Year
  Sex: Male
  Weight: 63 kg

DRUGS (1)
  1. TEGRETOL [Suspect]
     Indication: EPILEPSY
     Dosage: 400 MG, BID
     Route: 048
     Dates: start: 20050617, end: 20050721

REACTIONS (11)
  - ABNORMAL BEHAVIOUR [None]
  - AFFECTIVE DISORDER [None]
  - AGGRESSION [None]
  - DEPRESSION [None]
  - EPILEPSY [None]
  - IRRITABILITY [None]
  - NERVOUSNESS [None]
  - SELF INJURIOUS BEHAVIOUR [None]
  - SELF MUTILATION [None]
  - SUICIDAL IDEATION [None]
  - SUICIDE ATTEMPT [None]
